FAERS Safety Report 6299874-1 (Version None)
Quarter: 2009Q3

REPORT INFORMATION
  Report Type: 
  Country: None (occurrence: None)
  Receive Date: 20090806
  Receipt Date: 20090724
  Transmission Date: 20100115
  Serious: Yes (Hospitalization)
  Sender: FDA-Public Use
  Company Number: PHHY2009AU27986

PATIENT
  Sex: Female

DRUGS (7)
  1. CLOZARIL [Suspect]
     Indication: PSYCHOTIC DISORDER
     Dosage: 125 MG, UNK
     Route: 048
     Dates: start: 20080417
  2. METYLDOPA [Concomitant]
     Dosage: 250 MG DAILY
     Route: 048
  3. CLONAZEPAM [Concomitant]
     Dosage: 1 MG NOCTE
     Route: 048
  4. ASPIRIN [Concomitant]
     Dosage: 100 MG DAILY
     Route: 048
  5. SLOW-K [Concomitant]
     Dosage: 600 MG DAILY
     Route: 048
  6. GLICLAZIDE [Concomitant]
     Dosage: 80 MG DAILY
     Route: 048
  7. PERINDOPRIL [Concomitant]
     Dosage: 2.5 MG DAILY
     Route: 048

REACTIONS (2)
  - MALABSORPTION [None]
  - MENTAL DISORDER [None]
